FAERS Safety Report 24874445 (Version 2)
Quarter: 2025Q1

REPORT INFORMATION
  Report Type: Spontaneous
  Country: US (occurrence: US)
  Receive Date: 20250122
  Receipt Date: 20250307
  Transmission Date: 20250408
  Serious: Yes (Other)
  Sender: TEVA
  Company Number: US-TEVA-VS-3287028

PATIENT
  Age: 71 Year
  Sex: Male

DRUGS (2)
  1. MODAFINIL [Suspect]
     Active Substance: MODAFINIL
     Indication: Sleep apnoea syndrome
     Route: 065
  2. TRINTELLIX [Concomitant]
     Active Substance: VORTIOXETINE HYDROBROMIDE
     Indication: Product used for unknown indication

REACTIONS (5)
  - Chronic kidney disease [Unknown]
  - Anxiety [Unknown]
  - Depression [Unknown]
  - Vertigo [Unknown]
  - Dizziness [Recovering/Resolving]

NARRATIVE: CASE EVENT DATE: 20240101
